FAERS Safety Report 7009411-1 (Version None)
Quarter: 2010Q3

REPORT INFORMATION
  Report Type: 
  Country: None (occurrence: None)
  Receive Date: 20100923
  Receipt Date: 20100914
  Transmission Date: 20110219
  Serious: Yes (Hospitalization)
  Sender: FDA-Public Use
  Company Number: US-SANOFI-AVENTIS-2010SA055425

PATIENT
  Age: 54 Year
  Sex: Female
  Weight: 115 kg

DRUGS (2)
  1. LANTUS [Suspect]
     Indication: TYPE 2 DIABETES MELLITUS
     Dosage: DOSE:10 UNIT(S)
     Route: 058
  2. OPTICLICK [Suspect]
     Indication: TYPE 2 DIABETES MELLITUS

REACTIONS (6)
  - BLOOD URIC ACID INCREASED [None]
  - DEHYDRATION [None]
  - GOUT [None]
  - IMPLANTABLE DEFIBRILLATOR INSERTION [None]
  - PULMONARY OEDEMA [None]
  - WEIGHT DECREASED [None]
